FAERS Safety Report 26142915 (Version 1)
Quarter: 2025Q4

REPORT INFORMATION
  Report Type: Spontaneous
  Country: US (occurrence: US)
  Receive Date: 20251211
  Receipt Date: 20251211
  Transmission Date: 20260117
  Serious: No
  Sender: TENSHI KAIZEN PRIVATE LIMITED
  Company Number: US-TENSHI KAIZEN PRIVATE LIMITED-2025TK000150

PATIENT
  Age: 70 Year
  Sex: Female

DRUGS (5)
  1. LORATADINE [Suspect]
     Active Substance: LORATADINE
     Indication: Hypersensitivity
     Dosage: UNK
     Route: 048
     Dates: start: 20250903, end: 20250930
  2. LORATADINE [Suspect]
     Active Substance: LORATADINE
     Dosage: 2 TABLETS ONE DAY
     Route: 048
     Dates: start: 202509
  3. LORATADINE [Suspect]
     Active Substance: LORATADINE
     Dosage: TOOK 3 TABLETS (IN A 24-HOUR PERIOD)
     Route: 048
     Dates: start: 20250930
  4. LISINOPRIL [Concomitant]
     Active Substance: LISINOPRIL
     Indication: Product used for unknown indication
     Dosage: UNK
     Route: 065
  5. ATORVASTATIN [Concomitant]
     Active Substance: ATORVASTATIN
     Indication: Product used for unknown indication
     Dosage: UNK
     Route: 065

REACTIONS (5)
  - Therapeutic product effect decreased [Unknown]
  - Intentional product misuse [Unknown]
  - Extra dose administered [Unknown]
  - Product taste abnormal [Unknown]
  - Product physical issue [Unknown]

NARRATIVE: CASE EVENT DATE: 20250901
